FAERS Safety Report 10177109 (Version 1)
Quarter: 2014Q2

REPORT INFORMATION
  Report Type: Spontaneous
  Country: US (occurrence: None)
  Receive Date: 20140515
  Receipt Date: 20140515
  Transmission Date: 20141212
  Serious: No
  Sender: FDA-Public Use
  Company Number: None

PATIENT
  Age: 54 Year
  Sex: Male
  Weight: 81.65 kg

DRUGS (4)
  1. ATORVASTATIN 40MG WATSON [Suspect]
     Indication: BLOOD CHOLESTEROL INCREASED
     Route: 048
     Dates: start: 20140325, end: 20140509
  2. TRIBENZOR [Concomitant]
  3. ASPIRIN [Concomitant]
  4. CENTRUM [Concomitant]

REACTIONS (2)
  - Product substitution issue [None]
  - Cough [None]
